FAERS Safety Report 21606644 (Version 1)
Quarter: 2022Q4

REPORT INFORMATION
  Report Type: Report from Study
  Country: US (occurrence: US)
  Receive Date: 20221117
  Receipt Date: 20221117
  Transmission Date: 20230112
  Serious: Yes (Other)
  Sender: FDA-Public Use
  Company Number: US-GILEAD-2022-0605075

PATIENT
  Sex: Male

DRUGS (14)
  1. AZTREONAM LYSINE [Suspect]
     Active Substance: AZTREONAM LYSINE
     Indication: Cystic fibrosis
     Dosage: 75 MG, TID AT 8AM, 2PM, AND 10PM EVERY OTHER MONTH
     Route: 055
  2. TRIKAFTA [Concomitant]
     Active Substance: ELEXACAFTOR\IVACAFTOR\TEZACAFTOR
  3. MONTELUKAST SODIUM [Concomitant]
     Active Substance: MONTELUKAST SODIUM
  4. CETIRIZINE HYDROCHLORIDE [Concomitant]
     Active Substance: CETIRIZINE HYDROCHLORIDE
  5. SODIUM CHLORIDE [Concomitant]
     Active Substance: SODIUM CHLORIDE
  6. PULMOZYME [Concomitant]
     Active Substance: DORNASE ALFA
  7. VITAMIN D3 [Concomitant]
     Active Substance: CHOLECALCIFEROL
  8. ADVAIR HFA [Concomitant]
     Active Substance: FLUTICASONE PROPIONATE\SALMETEROL XINAFOATE
  9. MIRALAX [Concomitant]
     Active Substance: POLYETHYLENE GLYCOL 3350
  10. PROAIR HFA [Concomitant]
     Active Substance: ALBUTEROL SULFATE
  11. ZENPEP [Concomitant]
     Active Substance: PANCRELIPASE AMYLASE\PANCRELIPASE LIPASE\PANCRELIPASE PROTEASE
  12. TOBRAMYCIN [Concomitant]
     Active Substance: TOBRAMYCIN
  13. KITABIS PAK [Concomitant]
     Active Substance: TOBRAMYCIN
  14. VITAMINS\ZINC [Concomitant]
     Active Substance: VITAMINS\ZINC

REACTIONS (1)
  - Pseudomonas infection [Not Recovered/Not Resolved]
